FAERS Safety Report 4865082-1 (Version None)
Quarter: 2005Q4

REPORT INFORMATION
  Report Type: 
  Country: None (occurrence: None)
  Receive Date: 20051223
  Receipt Date: 20051212
  Transmission Date: 20060501
  Serious: Yes (Other)
  Sender: FDA-Public Use
  Company Number: US-BRISTOL-MYERS SQUIBB COMPANY-13212089

PATIENT
  Age: 18 Year
  Sex: Male

DRUGS (12)
  1. AMOXICILLIN [Suspect]
     Indication: HELICOBACTER INFECTION
  2. CLARITHROMYCIN [Suspect]
     Indication: HELICOBACTER INFECTION
  3. FENTANYL [Concomitant]
     Indication: ANAESTHESIA
     Route: 042
  4. PROPOFOL [Concomitant]
     Indication: ANAESTHESIA
     Route: 042
  5. ISOFLURANE [Concomitant]
     Indication: ANAESTHESIA
     Route: 055
  6. ROCURONIUM BROMIDE [Concomitant]
     Indication: HYPOTONIA
  7. CLINDAMYCIN [Concomitant]
     Indication: PROPHYLAXIS
  8. GENTAMICIN [Concomitant]
     Indication: PROPHYLAXIS
  9. BUPIVACAINE [Concomitant]
  10. KETOROLAC TROMETHAMINE [Concomitant]
     Indication: PAIN
  11. ONDANSETRON [Concomitant]
     Indication: PROPHYLAXIS
  12. MORPHINE [Concomitant]

REACTIONS (6)
  - ACUTE PSYCHOSIS [None]
  - ANXIETY [None]
  - DELUSION [None]
  - HALLUCINATION [None]
  - INSOMNIA [None]
  - PSYCHOTIC DISORDER [None]
